FAERS Safety Report 9390870 (Version 2)
Quarter: 2013Q3

REPORT INFORMATION
  Report Type: Spontaneous
  Country: DE (occurrence: DE)
  Receive Date: 20130709
  Receipt Date: 20130717
  Transmission Date: 20140515
  Serious: Yes (Other)
  Sender: FDA-Public Use
  Company Number: PHHY2013DE071130

PATIENT
  Age: 80 Year
  Sex: Female
  Weight: 73.5 kg

DRUGS (1)
  1. FORMOTOP NOVOLIZER [Suspect]
     Indication: ASTHMA
     Dosage: 2 DF, QD

REACTIONS (1)
  - Weight decreased [Unknown]
